FAERS Safety Report 8999305 (Version 1)
Quarter: 2013Q1

REPORT INFORMATION
  Report Type: Spontaneous
  Country: US (occurrence: US)
  Receive Date: 20130103
  Receipt Date: 20130103
  Transmission Date: 20140127
  Serious: No
  Sender: FDA-Public Use
  Company Number: US-BAYER-2012-134591

PATIENT
  Age: 61 Year
  Sex: Male

DRUGS (1)
  1. STAXYN (FDT/ODT) [Suspect]
     Dosage: 10 MG, UNK
     Route: 048
     Dates: start: 20121216, end: 20121218

REACTIONS (2)
  - Tablet physical issue [None]
  - Drug ineffective [None]
